FAERS Safety Report 11258035 (Version 1)
Quarter: 2015Q3

REPORT INFORMATION
  Report Type: Spontaneous
  Country: US (occurrence: None)
  Receive Date: 20150708
  Receipt Date: 20150708
  Transmission Date: 20151125
  Serious: Yes (Other)
  Sender: FDA-Public Use
  Company Number: US-ZYDUS-008554

PATIENT
  Age: 73 Year
  Sex: Male

DRUGS (3)
  1. FUROSEMIDE (FUROSEMIDE) [Suspect]
     Active Substance: FUROSEMIDE
  2. METOPROLOL (METOPROLOL) [Suspect]
     Active Substance: METOPROLOL
  3. LOSARTAN (LOSARTAN) [Suspect]
     Active Substance: LOSARTAN

REACTIONS (7)
  - Ichthyosis [None]
  - Anaemia [None]
  - Parakeratosis [None]
  - Exfoliative rash [None]
  - Erythema [None]
  - Eosinophilia [None]
  - Rash pruritic [None]
